FAERS Safety Report 10888159 (Version 2)
Quarter: 2015Q2

REPORT INFORMATION
  Report Type: Spontaneous
  Country: US (occurrence: BR)
  Receive Date: 20150304
  Receipt Date: 20150514
  Transmission Date: 20150821
  Serious: Yes (Other)
  Sender: FDA-Public Use
  Company Number: BR-AMGEN-BRASP2015018958

PATIENT
  Age: 67 Year
  Sex: Female
  Weight: 58 kg

DRUGS (10)
  1. ENBREL [Suspect]
     Active Substance: ETANERCEPT
     Dosage: UNK
     Route: 065
     Dates: start: 201410
  2. GABAPENTIN. [Concomitant]
     Active Substance: GABAPENTIN
     Dosage: 200 MG, 1X/DAY
  3. METFORMIN [Concomitant]
     Active Substance: METFORMIN HYDROCHLORIDE
     Dosage: 850 MG, 2X/DAY
  4. AMLODIPINE [Concomitant]
     Active Substance: AMLODIPINE BESYLATE
     Dosage: 5 MG, DAILY
  5. ENBREL [Suspect]
     Active Substance: ETANERCEPT
     Indication: RHEUMATOID ARTHRITIS
     Dosage: 50 MG, WEEKLY
     Route: 058
     Dates: start: 201210, end: 201409
  6. LOSARTAN [Concomitant]
     Active Substance: LOSARTAN
     Dosage: 2 CAPSULES OF 20MG (40 MG), DAILY
  7. CODEINE [Concomitant]
     Active Substance: CODEINE
     Dosage: 30 MG, 1X/DAY
  8. DIACEREIN [Concomitant]
     Active Substance: DIACEREIN
     Dosage: 50 MG, 2X/DAY
  9. CHLOROQUINE [Concomitant]
     Active Substance: CHLOROQUINE\CHLOROQUINE PHOSPHATE
     Dosage: 250 MG, UNK
  10. METHOTREXATE [Concomitant]
     Active Substance: METHOTREXATE
     Dosage: 15 MG, WEEKLY

REACTIONS (3)
  - Arthritis [Unknown]
  - Peripheral swelling [Not Recovered/Not Resolved]
  - Carotid artery occlusion [Unknown]

NARRATIVE: CASE EVENT DATE: 20150220
